FAERS Safety Report 6709195-8 (Version None)
Quarter: 2010Q2

REPORT INFORMATION
  Report Type: 
  Country: None (occurrence: None)
  Receive Date: 20100503
  Receipt Date: 20100503
  Transmission Date: 20101027
  Serious: Yes (Life-Threatening)
  Sender: FDA-Public Use
  Company Number: None

PATIENT
  Age: 83 Year
  Sex: Female

DRUGS (3)
  1. MEGESTROL ACETATE [Suspect]
     Indication: DECREASED APPETITE
     Dosage: 400MG QD PO
     Route: 048
     Dates: start: 20100322, end: 20100417
  2. MEGESTROL ACETATE [Suspect]
     Indication: FAILURE TO THRIVE
     Dosage: 400MG QD PO
     Route: 048
     Dates: start: 20100322, end: 20100417
  3. MEGESTROL ACETATE [Suspect]
     Indication: WEIGHT DECREASED
     Dosage: 400MG QD PO
     Route: 048
     Dates: start: 20100322, end: 20100417

REACTIONS (1)
  - DEEP VEIN THROMBOSIS [None]
